FAERS Safety Report 16535719 (Version 2)
Quarter: 2019Q3

REPORT INFORMATION
  Report Type: Spontaneous
  Country: US (occurrence: US)
  Receive Date: 20190705
  Receipt Date: 20190821
  Transmission Date: 20191004
  Serious: No
  Sender: FDA-Public Use
  Company Number: US-ALK-ABELLO A/S-2019AA002112

PATIENT

DRUGS (1)
  1. HISTATROL [Suspect]
     Active Substance: HISTAMINE PHOSPHATE
     Indication: SKIN TEST
     Dosage: UNK
     Dates: start: 20190606, end: 20190606

REACTIONS (1)
  - False negative investigation result [Unknown]

NARRATIVE: CASE EVENT DATE: 20190606
